FAERS Safety Report 7444510-1 (Version None)
Quarter: 2011Q2

REPORT INFORMATION
  Report Type: 
  Country: None (occurrence: None)
  Receive Date: 20110427
  Receipt Date: 20110427
  Transmission Date: 20111010
  Serious: Yes (Other)
  Sender: FDA-Public Use
  Company Number: None

PATIENT
  Sex: Female
  Weight: 89.8122 kg

DRUGS (1)
  1. FAMCICLOVIR [Suspect]
     Indication: GENITAL HERPES
     Dosage: 250 BID
     Dates: start: 20110301

REACTIONS (3)
  - RASH [None]
  - URTICARIA [None]
  - BURNING SENSATION [None]
